FAERS Safety Report 18423083 (Version 1)
Quarter: 2020Q4

REPORT INFORMATION
  Report Type: Spontaneous
  Country: US (occurrence: US)
  Receive Date: 20201023
  Receipt Date: 20201023
  Transmission Date: 20210114
  Serious: Yes (Other)
  Sender: FDA-Public Use
  Company Number: US-ABBVIE-20K-163-3520641-00

PATIENT
  Age: 25 Year
  Sex: Female

DRUGS (1)
  1. ORILISSA [Suspect]
     Active Substance: ELAGOLIX SODIUM
     Indication: ENDOMETRIOSIS
     Route: 048
     Dates: start: 2019

REACTIONS (7)
  - Suicidal ideation [Unknown]
  - Mental disorder [Unknown]
  - General physical condition abnormal [Unknown]
  - Nervousness [Unknown]
  - Congenital uterine anomaly [Unknown]
  - Hormone level abnormal [Unknown]
  - Anger [Unknown]
